FAERS Safety Report 7010368-8 (Version None)
Quarter: 2010Q3

REPORT INFORMATION
  Report Type: 
  Country: None (occurrence: None)
  Receive Date: 20100909
  Receipt Date: 20100519
  Transmission Date: 20110219
  Serious: No
  Sender: FDA-Public Use
  Company Number: 2010SP027945

PATIENT
  Sex: Female

DRUGS (1)
  1. SAPHRIS [Suspect]
     Indication: PRODUCT USED FOR UNKNOWN INDICATION
     Dosage: 5 MG;BID;SL; 5 MMG; HS;SL
     Route: 060
     Dates: start: 20100429

REACTIONS (6)
  - ADVERSE EVENT [None]
  - COGNITIVE DISORDER [None]
  - FATIGUE [None]
  - INAPPROPRIATE SCHEDULE OF DRUG ADMINISTRATION [None]
  - SENSATION OF HEAVINESS [None]
  - UNDERDOSE [None]
